FAERS Safety Report 26126148 (Version 1)
Quarter: 2025Q4

REPORT INFORMATION
  Report Type: Spontaneous
  Country: US (occurrence: None)
  Receive Date: 20251205
  Receipt Date: 20251205
  Transmission Date: 20260118
  Serious: Yes (Hospitalization)
  Sender: FDA-CTU
  Company Number: None

PATIENT
  Sex: Male

DRUGS (11)
  1. LENALIDOMIDE [Suspect]
     Active Substance: LENALIDOMIDE
     Indication: Plasma cell myeloma
     Dosage: TAKE 1 CAPSULE BY MOUTH DAILY FOR 14 DAYS THEN 7 DAYS OFF.?
     Route: 048
     Dates: start: 20250221
  2. ACYCLOVIR POW [Concomitant]
  3. ALBUTEROL POW SULFATE [Concomitant]
  4. AMLODIPINE [Concomitant]
     Active Substance: AMLODIPINE BESYLATE
  5. ASPIRIN [Concomitant]
     Active Substance: ASPIRIN
  6. DARZALEX SOL 100/5ML [Concomitant]
  7. DEXAMETHASON POW ACETATE [Concomitant]
  8. GABAPENTIN TAB 600MG [Concomitant]
  9. METFORMIN [Concomitant]
     Active Substance: METFORMIN HYDROCHLORIDE
  10. ONDANSETRON [Concomitant]
     Active Substance: ONDANSETRON
  11. OXYCODONE CAP5MG [Concomitant]

REACTIONS (3)
  - Bone marrow transplant [None]
  - Therapy interrupted [None]
  - Therapy change [None]
